FAERS Safety Report 9275166 (Version 1)
Quarter: 2013Q2

REPORT INFORMATION
  Report Type: Spontaneous
  Country: FR (occurrence: FR)
  Receive Date: 20130507
  Receipt Date: 20130507
  Transmission Date: 20140414
  Serious: Yes (Other)
  Sender: FDA-Public Use
  Company Number: FR-PFIZER INC-2013138404

PATIENT
  Age: 62 Year
  Sex: Male

DRUGS (3)
  1. SUTENT [Suspect]
     Indication: RENAL CANCER
     Dosage: UNK
     Dates: start: 2009
  2. SUTENT [Suspect]
     Dosage: 37.5 MG, CYCLIC (4 WEEKS OUT, OFF 6)
  3. PREVISCAN [Concomitant]
     Dosage: UNK

REACTIONS (3)
  - Necrosis [Unknown]
  - Nasal septum perforation [Unknown]
  - Epistaxis [Unknown]
